FAERS Safety Report 9274945 (Version 3)
Quarter: 2013Q4

REPORT INFORMATION
  Report Type: Spontaneous
  Country: US (occurrence: US)
  Receive Date: 20130507
  Receipt Date: 20131118
  Transmission Date: 20140711
  Serious: Yes (Hospitalization)
  Sender: FDA-Public Use
  Company Number: US-BAYER-2013-056089

PATIENT
  Age: 38 Year
  Sex: Female
  Weight: 52.61 kg

DRUGS (27)
  1. BEYAZ [Suspect]
     Indication: CONTRACEPTION
     Dosage: UNK
     Dates: start: 20110601, end: 201108
  2. BEYAZ [Suspect]
     Indication: MENSTRUAL CYCLE MANAGEMENT
  3. BEYAZ [Suspect]
     Indication: CYST
  4. EFFEXOR [Concomitant]
     Indication: ANXIETY
     Dosage: 150 MG, QD
  5. EFFEXOR [Concomitant]
     Indication: ANXIETY
     Dosage: 175 MG, DAILY
  6. LORTAB [Concomitant]
  7. ZOFRAN [Concomitant]
  8. XANAX [Concomitant]
     Indication: ANXIETY
  9. METHYLPREDNISOLONE [Concomitant]
     Dosage: 125 MG, UNK
     Route: 042
  10. COLACE [Concomitant]
     Dosage: 100 MG, BID
     Route: 048
  11. PENNSAID [Concomitant]
     Dosage: 1.5 UNK, UNK
  12. CIPRODEX [Concomitant]
     Dosage: 0.3-0.1% 4 DROPS BID FOR 5D
  13. DONNATAL [Concomitant]
     Dosage: 1 EVERY SIX HOURS PRN
  14. OMEPRAZOLE [Concomitant]
     Dosage: 40 MG, UNK
     Route: 048
  15. LEVSIN [Concomitant]
     Indication: ABDOMINAL PAIN
     Dosage: 0.125 MG, Q 8 HRS PRN
     Route: 048
  16. ALBUTEROL SULFATE [Concomitant]
     Dosage: 0.083 %, Q4HR
     Route: 045
  17. MILK OF MAGNESIA [Concomitant]
     Indication: CONSTIPATION
  18. MEPERIDINE HCL [Concomitant]
     Dosage: 50 MG, UNK
     Route: 042
  19. DIPHENHYDRAMIN HCL [Concomitant]
     Dosage: 25 MG, UNK
     Route: 042
  20. HYDROMORPHONE HCL [Concomitant]
     Dosage: 2 MG, UNK
     Route: 042
  21. KETOROLAC [Concomitant]
     Dosage: 30 MG, UNK
     Route: 042
  22. VENLAFAXINE HYDROCHLORIDE [Concomitant]
     Dosage: 150 MG, DAILY
  23. ALPRAZOLAM [Concomitant]
     Dosage: 1 MG, BID, AS NEEDED
  24. MEPERIDINE [Concomitant]
  25. DIPHENHYDRAMINE [Concomitant]
  26. HYDROMORPHONE [Concomitant]
  27. ONDANSETRON [Concomitant]

REACTIONS (12)
  - Pulmonary embolism [Recovered/Resolved]
  - Deep vein thrombosis [None]
  - Depression [None]
  - Emotional distress [None]
  - Haemoptysis [Recovered/Resolved]
  - Dyspnoea [Recovered/Resolved]
  - Chest pain [Recovered/Resolved]
  - Dizziness [Recovered/Resolved]
  - Fear of death [None]
  - Anxiety [None]
  - Injury [Recovered/Resolved]
  - Nervousness [None]
